FAERS Safety Report 12595647 (Version 1)
Quarter: 2016Q3

REPORT INFORMATION
  Report Type: Spontaneous
  Country: FR (occurrence: FR)
  Receive Date: 20160727
  Receipt Date: 20160727
  Transmission Date: 20161109
  Serious: Yes (Other)
  Sender: FDA-Public Use
  Company Number: FR-LEO PHARMA-242653

PATIENT
  Age: 61 Year
  Sex: Male
  Weight: 87 kg

DRUGS (1)
  1. PICATO [Suspect]
     Active Substance: INGENOL MEBUTATE
     Indication: ACTINIC KERATOSIS
     Dates: start: 20160613, end: 20160613

REACTIONS (8)
  - Application site pain [Recovered/Resolved]
  - Application site swelling [Recovered/Resolved]
  - Drug administered at inappropriate site [Unknown]
  - Periorbital oedema [Recovered/Resolved]
  - Incorrect drug administration duration [Unknown]
  - Application site pustules [Recovered/Resolved]
  - Pyrexia [Recovered/Resolved]
  - Application site inflammation [Recovered/Resolved]

NARRATIVE: CASE EVENT DATE: 20160613
